FAERS Safety Report 25279498 (Version 1)
Quarter: 2025Q2

REPORT INFORMATION
  Report Type: Spontaneous
  Country: US (occurrence: US)
  Receive Date: 20250507
  Receipt Date: 20250507
  Transmission Date: 20250717
  Serious: Yes (Hospitalization)
  Sender: Alora Pharma
  Company Number: US-AVION PHARMACEUTICALS-2025ALO02190

PATIENT
  Age: 75 Year
  Sex: Male

DRUGS (2)
  1. CARBIDOPA LEVODOPA [Suspect]
     Active Substance: CARBIDOPA\LEVODOPA
     Indication: Parkinson^s disease
     Dosage: 1 TABLETS, 3X/DAY
     Route: 048
  2. CARBIDOPA LEVODOPA [Suspect]
     Active Substance: CARBIDOPA\LEVODOPA
     Dosage: 2 TABLETS, 3X/DAY
     Route: 048

REACTIONS (2)
  - Food interaction [Recovered/Resolved]
  - Parkinsonism hyperpyrexia syndrome [Recovered/Resolved]
